FAERS Safety Report 10758189 (Version 1)
Quarter: 2015Q1

REPORT INFORMATION
  Report Type: Spontaneous
  Country: US (occurrence: US)
  Receive Date: 20150203
  Receipt Date: 20150203
  Transmission Date: 20150721
  Serious: No
  Sender: FDA-Public Use
  Company Number: US-BAYER-2015-015705

PATIENT
  Age: 60 Year
  Sex: Female

DRUGS (1)
  1. GADAVIST [Suspect]
     Active Substance: GADOBUTROL
     Indication: NUCLEAR MAGNETIC RESONANCE IMAGING BRAIN
     Dosage: 6.5 ML, UNK
     Dates: start: 20150128, end: 20150128

REACTIONS (3)
  - Rash [None]
  - Urticaria [None]
  - Erythema [None]

NARRATIVE: CASE EVENT DATE: 20150128
